FAERS Safety Report 20510075 (Version 1)
Quarter: 2022Q1

REPORT INFORMATION
  Report Type: Spontaneous
  Country: DE (occurrence: DE)
  Receive Date: 20220224
  Receipt Date: 20220224
  Transmission Date: 20220424
  Serious: Yes (Death, Hospitalization, Other)
  Sender: FDA-Public Use
  Company Number: DE-AMGEN-DEUSP2022029308

PATIENT

DRUGS (4)
  1. FILGRASTIM [Suspect]
     Active Substance: FILGRASTIM
     Indication: Haematopoietic stem cell mobilisation
     Dosage: UNK UNK, QD (AT LEAST 105 MCG DAILY FROM DAY 2 AFTER CYCLOPHOSPHAMIDE)
     Route: 065
  2. FILGRASTIM [Suspect]
     Active Substance: FILGRASTIM
     Indication: Off label use
  3. ANTI-THYMOCYTE GLOBULIN (RABBIT) NOS [Concomitant]
     Active Substance: LAPINE T-LYMPHOCYTE IMMUNE GLOBULIN
     Dosage: UNK ( A TOTAL OF 30 MG/KG)
  4. CYCLOPHOSPHAMIDE [Concomitant]
     Active Substance: CYCLOPHOSPHAMIDE
     Dosage: 2 GRAM PER SQUARE METRE (A TOTAL OF 200 MG/KG BODY WEIGHT)

REACTIONS (5)
  - Pulmonary arterial hypertension [Fatal]
  - Pneumonia [Unknown]
  - Arthritis [Unknown]
  - Chondrocalcinosis pyrophosphate [Unknown]
  - Off label use [Unknown]
